FAERS Safety Report 25819946 (Version 1)
Quarter: 2025Q3

REPORT INFORMATION
  Report Type: Report from Study
  Country: CO (occurrence: CO)
  Receive Date: 20250918
  Receipt Date: 20250918
  Transmission Date: 20251020
  Serious: Yes (Other)
  Sender: JOHNSON AND JOHNSON
  Company Number: CO-JNJFOC-20250913211

PATIENT
  Age: 90 Year
  Sex: Male
  Weight: 58 kg

DRUGS (1)
  1. ERLEADA [Suspect]
     Active Substance: APALUTAMIDE
     Indication: Hormone-refractory prostate cancer
     Route: 048
     Dates: start: 20240104, end: 20250813

REACTIONS (2)
  - Cerebral infarction [Unknown]
  - Hemiplegia [Unknown]

NARRATIVE: CASE EVENT DATE: 20250726
